FAERS Safety Report 15295684 (Version 4)
Quarter: 2019Q1

REPORT INFORMATION
  Report Type: Spontaneous
  Country: US (occurrence: US)
  Receive Date: 20180820
  Receipt Date: 20190212
  Transmission Date: 20190417
  Serious: Yes (Hospitalization, Congenital Anomaly, Other)
  Sender: FDA-Public Use
  Company Number: US-GLAXOSMITHKLINE-US2018GSK149503

PATIENT
  Sex: Male

DRUGS (12)
  1. TAGAMET [Suspect]
     Active Substance: CIMETIDINE
     Indication: COLITIS ULCERATIVE
     Dosage: 200 MG, UNK
     Route: 065
  2. PANTOPRAZOLE [Suspect]
     Active Substance: PANTOPRAZOLE
     Indication: COLITIS ULCERATIVE
     Dosage: 40 MG, UNK
     Route: 065
  3. PANTOPRAZOLE [Suspect]
     Active Substance: PANTOPRAZOLE
     Indication: DIVERTICULITIS
  4. TAGAMET [Suspect]
     Active Substance: CIMETIDINE
     Indication: COLITIS ULCERATIVE
     Dosage: UNK
     Route: 065
  5. OMEPRAZOLE. [Suspect]
     Active Substance: OMEPRAZOLE
     Indication: DIVERTICULITIS
  6. PREVACID [Suspect]
     Active Substance: LANSOPRAZOLE
     Indication: DIVERTICULITIS
  7. TAGAMET [Suspect]
     Active Substance: CIMETIDINE
     Indication: DIVERTICULITIS
  8. ZANTAC [Suspect]
     Active Substance: RANITIDINE HYDROCHLORIDE
     Indication: COLITIS ULCERATIVE
     Dosage: UNK
     Route: 065
  9. OMEPRAZOLE. [Suspect]
     Active Substance: OMEPRAZOLE
     Indication: COLITIS ULCERATIVE
     Dosage: 40 MG, UNK
     Route: 065
  10. PREVACID [Suspect]
     Active Substance: LANSOPRAZOLE
     Indication: COLITIS ULCERATIVE
     Dosage: 30 MG, UNK
     Route: 065
  11. ZANTAC [Suspect]
     Active Substance: RANITIDINE HYDROCHLORIDE
     Indication: DIVERTICULITIS
  12. TAGAMET [Suspect]
     Active Substance: CIMETIDINE
     Indication: DIVERTICULITIS

REACTIONS (9)
  - Renal disorder [Unknown]
  - Chronic kidney disease [Unknown]
  - Nephrolithiasis [Unknown]
  - Renal failure [Unknown]
  - Nephropathy [Unknown]
  - Renal impairment [Unknown]
  - Urethral stenosis [Unknown]
  - Acute kidney injury [Unknown]
  - Diabetic nephropathy [Unknown]
